FAERS Safety Report 8401064-0 (Version None)
Quarter: 2012Q2

REPORT INFORMATION
  Report Type: 
  Country: None (occurrence: None)
  Receive Date: 20120530
  Receipt Date: 20120530
  Transmission Date: 20120825
  Serious: Yes (Hospitalization)
  Sender: FDA-Public Use
  Company Number: None

PATIENT
  Age: 46 Year
  Sex: Female
  Weight: 54.4316 kg

DRUGS (1)
  1. SKELAXIN [Suspect]
     Indication: MUSCLE SPASMS
     Dosage: 1 TID PO
     Route: 048
     Dates: start: 20100501, end: 20100506

REACTIONS (13)
  - BLOOD CALCIUM DECREASED [None]
  - NAUSEA [None]
  - ASTHENIA [None]
  - DRUG TOLERANCE DECREASED [None]
  - BLOOD GLUCOSE INCREASED [None]
  - BLOOD BILIRUBIN INCREASED [None]
  - ANXIETY [None]
  - ALANINE AMINOTRANSFERASE INCREASED [None]
  - ALCOHOL INTOLERANCE [None]
  - MALAISE [None]
  - ASPARTATE AMINOTRANSFERASE INCREASED [None]
  - BLOOD POTASSIUM DECREASED [None]
  - BLOOD ALKALINE PHOSPHATASE INCREASED [None]
